FAERS Safety Report 11777361 (Version 1)
Quarter: 2015Q4

REPORT INFORMATION
  Report Type: Spontaneous
  Country: US (occurrence: US)
  Receive Date: 20151125
  Receipt Date: 20151125
  Transmission Date: 20160304
  Serious: No
  Sender: FDA-Public Use
  Company Number: US-MALLINCKRODT-T201504331

PATIENT
  Sex: Male

DRUGS (11)
  1. GABLOFEN [Suspect]
     Active Substance: BACLOFEN
     Dosage: 365 MCG/DAY
     Route: 037
     Dates: start: 20150515
  2. VALIUM [Suspect]
     Active Substance: DIAZEPAM
     Dosage: TOOK 1/2 DOSE
     Dates: start: 20150317, end: 20150317
  3. OXYCONTIN [Suspect]
     Active Substance: OXYCODONE HYDROCHLORIDE
     Indication: PRODUCT USED FOR UNKNOWN INDICATION
     Dosage: 10 MG QID
     Dates: end: 201503
  4. GABLOFEN [Suspect]
     Active Substance: BACLOFEN
     Dosage: 267.9 MCG/DAY (WITH FLEX DOSE; BASAL  10.5 MCG/HR)
     Route: 037
     Dates: start: 20150414, end: 20150504
  5. GABLOFEN [Suspect]
     Active Substance: BACLOFEN
     Dosage: 220 MCG/DAY
     Route: 037
     Dates: start: 20150320, end: 20150326
  6. GABLOFEN [Suspect]
     Active Substance: BACLOFEN
     Indication: MUSCLE SPASTICITY
     Dosage: 199.9 MCG/DAY
     Route: 037
     Dates: start: 20150306, end: 20150320
  7. GABLOFEN [Suspect]
     Active Substance: BACLOFEN
     Dosage: 315 MCG/DAY
     Route: 037
     Dates: start: 20150504, end: 20150515
  8. PERCOCET [Concomitant]
     Active Substance: ACETAMINOPHEN\OXYCODONE HYDROCHLORIDE
  9. GABLOFEN [Suspect]
     Active Substance: BACLOFEN
     Dosage: 241.8 MCG/DAY (WITH FLEX DOSING)
     Route: 037
     Dates: start: 20150326, end: 20150414
  10. OXYCONTIN [Suspect]
     Active Substance: OXYCODONE HYDROCHLORIDE
     Dosage: 10 MG TID
     Dates: start: 201503
  11. VALIUM [Suspect]
     Active Substance: DIAZEPAM
     Indication: PRODUCT USED FOR UNKNOWN INDICATION
     Dosage: 10 MG Q4HRS PRN
     Route: 065
     Dates: end: 201503

REACTIONS (15)
  - Hypoaesthesia [Not Recovered/Not Resolved]
  - Somnolence [Recovering/Resolving]
  - Paraesthesia [Not Recovered/Not Resolved]
  - Incision site swelling [Unknown]
  - Malaise [Not Recovered/Not Resolved]
  - Feeling abnormal [Unknown]
  - Hypotonia [Unknown]
  - Muscle tightness [Not Recovered/Not Resolved]
  - Implant site pain [Not Recovered/Not Resolved]
  - Gait disturbance [Recovering/Resolving]
  - Muscular weakness [Not Recovered/Not Resolved]
  - Nausea [Recovering/Resolving]
  - Fatigue [Recovering/Resolving]
  - Urinary retention [Unknown]
  - Drug effect decreased [Not Recovered/Not Resolved]

NARRATIVE: CASE EVENT DATE: 2015
